FAERS Safety Report 24254398 (Version 1)
Quarter: 2024Q3

REPORT INFORMATION
  Report Type: Spontaneous
  Country: US (occurrence: None)
  Receive Date: 20240826
  Receipt Date: 20240826
  Transmission Date: 20241017
  Serious: Yes (Hospitalization)
  Sender: Public
  Company Number: None

PATIENT
  Sex: Female

DRUGS (2)
  1. HYRIMOZ [Suspect]
     Active Substance: ADALIMUMAB-ADAZ
     Indication: Psoriasis
     Dosage: 40MG EVERY OTHER SEEK SUBCUTANEOUSLY
     Route: 058
     Dates: start: 202404
  2. HYRIMOZ [Suspect]
     Active Substance: ADALIMUMAB-ADAZ
     Indication: Psoriatic arthropathy

REACTIONS (7)
  - Fatigue [None]
  - Myalgia [None]
  - Nausea [None]
  - Vomiting [None]
  - Loss of consciousness [None]
  - Fall [None]
  - Lower limb fracture [None]
